FAERS Safety Report 8481690-3 (Version None)
Quarter: 2012Q3

REPORT INFORMATION
  Report Type: 
  Country: None (occurrence: None)
  Receive Date: 20120702
  Receipt Date: 20120627
  Transmission Date: 20120928
  Serious: Yes (Hospitalization, Other)
  Sender: FDA-Public Use
  Company Number: FR-ROCHE-1047218

PATIENT
  Age: 83 Year
  Sex: Female
  Weight: 62 kg

DRUGS (8)
  1. BISOPROLOL FUMARATE [Concomitant]
     Dosage: 1.25 MG AND 2.5 MG PER DAY
  2. MINI-SINTROM [Concomitant]
     Dosage: 1/2 DOSE DAILY
  3. MODOPAR [Concomitant]
  4. STATIN (UNK INGREDIENTS) [Concomitant]
  5. POTASSIUM CHLORIDE [Concomitant]
  6. FUROSEMIDE [Concomitant]
  7. RAMIPRIL [Concomitant]
  8. ROCEPHIN [Suspect]
     Indication: LUNG DISORDER
     Route: 042
     Dates: start: 20120113, end: 20120119

REACTIONS (2)
  - PANCREATITIS ACUTE [None]
  - CHOLELITHIASIS [None]
